FAERS Safety Report 26216593 (Version 1)
Quarter: 2025Q4

REPORT INFORMATION
  Report Type: Report from Study
  Country: US (occurrence: US)
  Receive Date: 20251231
  Receipt Date: 20251231
  Transmission Date: 20260118
  Serious: Yes (Hospitalization)
  Sender: TEVA
  Company Number: US-TEVA-VS-3408164

PATIENT
  Age: 63 Year
  Sex: Male

DRUGS (1)
  1. AUSTEDO XR [Suspect]
     Active Substance: DEUTETRABENAZINE
     Indication: Product used for unknown indication
     Dosage: DENTAL SOLUTION
     Route: 065

REACTIONS (2)
  - Hypertension [Not Recovered/Not Resolved]
  - Heart rate irregular [Not Recovered/Not Resolved]
